FAERS Safety Report 4903342-6 (Version None)
Quarter: 2006Q1

REPORT INFORMATION
  Report Type: 
  Country: None (occurrence: None)
  Receive Date: 20060206
  Receipt Date: 20060206
  Transmission Date: 20060701
  Serious: Yes (Life-Threatening, Hospitalization)
  Sender: FDA-Public Use
  Company Number: None

PATIENT
  Age: 54 Year
  Sex: Male
  Weight: 106 kg

DRUGS (2)
  1. PHENYTOIN [Suspect]
     Indication: CONVULSION
     Dosage: 300MG PO BID
     Route: 048
     Dates: start: 20051022, end: 20051104
  2. AMPICILLIN 2G [Suspect]
     Indication: ENDOCARDITIS
     Dosage: 2 G IV Q4
     Route: 042
     Dates: start: 20051026

REACTIONS (5)
  - EOSINOPHILIA [None]
  - HEPATIC ENZYME INCREASED [None]
  - HYPOTENSION [None]
  - PYREXIA [None]
  - RASH [None]
